FAERS Safety Report 23100832 (Version 1)
Quarter: 2023Q4

REPORT INFORMATION
  Report Type: Report from Study
  Country: AT (occurrence: AT)
  Receive Date: 20231024
  Receipt Date: 20231024
  Transmission Date: 20240110
  Serious: Yes (Hospitalization)
  Sender: FDA-Public Use
  Company Number: AT-ROCHE-3403730

PATIENT
  Age: 75 Year
  Sex: Female
  Weight: 48 kg

DRUGS (10)
  1. TRASTUZUMAB [Suspect]
     Active Substance: TRASTUZUMAB
     Indication: HER2 positive breast cancer
     Dosage: 424 MILLIGRAM
     Route: 042
     Dates: start: 20230224
  2. TRASTUZUMAB [Suspect]
     Active Substance: TRASTUZUMAB
     Dosage: 282 MILLIGRAM
     Route: 042
     Dates: start: 20230406
  3. TRASTUZUMAB [Suspect]
     Active Substance: TRASTUZUMAB
     Dosage: 294 MILLIGRAM
     Route: 042
     Dates: start: 20230427
  4. PERJETA [Suspect]
     Active Substance: PERTUZUMAB
     Indication: HER2 positive breast cancer
     Dosage: 840 MILLIGRAM
     Route: 042
     Dates: start: 20230224
  5. PERJETA [Suspect]
     Active Substance: PERTUZUMAB
     Dosage: LAST ADMINISTRATION PRIOR TO SAE: 27/APR/2023
     Route: 042
     Dates: start: 20230406
  6. ZIEXTENZO [Concomitant]
     Active Substance: PEGFILGRASTIM-BMEZ
     Dosage: 6 MILLIGRAM, QD
     Route: 065
     Dates: start: 20230407, end: 20230407
  7. Paspertin [Concomitant]
     Dosage: 10 MILLIGRAM
     Route: 065
  8. DEXAMETHASONE [Concomitant]
     Active Substance: DEXAMETHASONE
     Dosage: 8 MILLIGRAM, BID (0.5 DAY)
     Route: 065
     Dates: start: 20230405, end: 20230407
  9. GRANISETRON [Concomitant]
     Active Substance: GRANISETRON
     Dosage: 2 MILLIGRAM, QD
     Route: 065
  10. ACETAMINOPHEN [Concomitant]
     Active Substance: ACETAMINOPHEN
     Dosage: 500 MILLIGRAM
     Route: 065

REACTIONS (7)
  - Febrile neutropenia [Recovered/Resolved]
  - Neutrophil count decreased [Recovered/Resolved]
  - Platelet count decreased [Recovered/Resolved]
  - Reproductive tract disorder [Unknown]
  - Urinary tract infection [Recovered/Resolved]
  - Pyrexia [Unknown]
  - Anaemia [Unknown]

NARRATIVE: CASE EVENT DATE: 20230413
